FAERS Safety Report 7802082-3 (Version None)
Quarter: 2011Q4

REPORT INFORMATION
  Report Type: 
  Country: None (occurrence: None)
  Receive Date: 20111007
  Receipt Date: 20110926
  Transmission Date: 20120403
  Serious: Yes (Life-Threatening, Hospitalization, Other)
  Sender: FDA-Public Use
  Company Number: CA-ELI_LILLY_AND_COMPANY-CA201109007060

PATIENT
  Sex: Female

DRUGS (6)
  1. RIVASA [Concomitant]
  2. ZYPREXA [Suspect]
     Indication: DEPRESSION
     Dosage: 5 MG, QD
     Dates: start: 20030805
  3. TRAZODONE HYDROCHLORIDE [Concomitant]
  4. CRESTOR [Concomitant]
  5. TEMAZEPAM [Concomitant]
  6. PRAVASTATIN [Concomitant]

REACTIONS (7)
  - HYPERKALAEMIA [None]
  - OFF LABEL USE [None]
  - DIABETIC KETOACIDOSIS [None]
  - DIABETES MELLITUS [None]
  - SHOCK [None]
  - HYPERTENSION [None]
  - RENAL FAILURE ACUTE [None]
